FAERS Safety Report 7709998 (Version 3)
Quarter: 2012Q4

REPORT INFORMATION
  Report Type: 
  Country: US (occurrence: US)
  Receive Date: 20101214
  Receipt Date: 20120910
  Transmission Date: 20130627
  Serious: No
  Sender: FDA-Public Use
  Company Number: FR-ASTRAZENECA-2010SE49657

PATIENT
  Age: 64 Year
  Sex: Female

DRUGS (2)
  1. CRESTOR [Suspect]
     Route: 048
  2. NEXIUM [Suspect]
     Route: 048

REACTIONS (4)
  - Drug intolerance [Unknown]
  - Synovial cyst [Unknown]
  - Mass [Unknown]
  - Malaise [Unknown]
